FAERS Safety Report 9983384 (Version 2)
Quarter: 2014Q1

REPORT INFORMATION
  Report Type: Spontaneous
  Country: JP (occurrence: JP)
  Receive Date: 20140307
  Receipt Date: 20140307
  Transmission Date: 20141002
  Serious: Yes (Death, Other)
  Sender: FDA-Public Use
  Company Number: JP-TAKEDA-TCI2013A05013

PATIENT
  Age: 48 Year
  Sex: Male

DRUGS (3)
  1. TAKEPRON CAPSULES 30 [Suspect]
     Dosage: UNK
     Route: 065
  2. PROPOFOL [Concomitant]
     Dosage: UNK
     Route: 050
  3. ANTIHYPERTENSIVES [Concomitant]
     Dosage: UNK
     Route: 065

REACTIONS (2)
  - Sepsis [Fatal]
  - Toxic epidermal necrolysis [Fatal]
